FAERS Safety Report 4330908-7 (Version None)
Quarter: 2004Q1

REPORT INFORMATION
  Report Type: 
  Country: None (occurrence: None)
  Receive Date: 20040331
  Receipt Date: 20040316
  Transmission Date: 20041129
  Serious: Yes (Other)
  Sender: FDA-Public Use
  Company Number: USA031049111

PATIENT
  Age: 81 Year
  Sex: Female

DRUGS (6)
  1. EVISTA [Suspect]
     Dates: start: 20030927
  2. MIACALCIN [Concomitant]
  3. ACTONEL [Concomitant]
  4. CALCIUM [Concomitant]
  5. VITAMIN D [Concomitant]
  6. LAXATIVE [Concomitant]

REACTIONS (7)
  - BLADDER PROLAPSE [None]
  - EYE DISORDER [None]
  - EYE PAIN [None]
  - MUSCLE CRAMP [None]
  - OEDEMA PERIPHERAL [None]
  - PERIPHERAL VASCULAR DISORDER [None]
  - URINARY INCONTINENCE [None]
